FAERS Safety Report 7227394-6 (Version None)
Quarter: 2011Q1

REPORT INFORMATION
  Report Type: 
  Country: None (occurrence: None)
  Receive Date: 20110111
  Receipt Date: 20110111
  Transmission Date: 20110831
  Serious: Yes (Life-Threatening)
  Sender: FDA-Public Use
  Company Number: None

PATIENT
  Sex: Female
  Weight: 87.5442 kg

DRUGS (1)
  1. FASLODEX [Suspect]
     Indication: BREAST CANCER
     Dosage: 500 MG EVERY 28 DAYSS IM
     Route: 030
     Dates: start: 20101110, end: 20110106

REACTIONS (3)
  - ANGIOEDEMA [None]
  - HYPOAESTHESIA [None]
  - DYSGEUSIA [None]
